FAERS Safety Report 15012602 (Version 1)
Quarter: 2018Q2

REPORT INFORMATION
  Report Type: Spontaneous
  Country: DE (occurrence: DE)
  Receive Date: 20180614
  Receipt Date: 20180614
  Transmission Date: 20180711
  Serious: Yes (Hospitalization)
  Sender: FDA-Public Use
  Company Number: DE-TEVA-2018-DE-907646

PATIENT
  Age: 87 Year
  Sex: Male
  Weight: 75 kg

DRUGS (10)
  1. FOLSAN [Concomitant]
     Active Substance: FOLIC ACID
     Dosage: 1-0-0-0
     Route: 048
  2. TORASEMID [Concomitant]
     Active Substance: TORSEMIDE
     Dosage: 1-0-0-0
     Route: 048
  3. OMEPRAZOLE. [Suspect]
     Active Substance: OMEPRAZOLE
     Dosage: 1-0-0-0
     Route: 048
  4. ALDACTONE [Concomitant]
     Active Substance: SPIRONOLACTONE
     Dosage: 1-0-0-0
     Route: 048
  5. METOPROLOL. [Concomitant]
     Active Substance: METOPROLOL
     Dosage: 1-0-1-0
     Route: 048
  6. ASPIRIN. [Concomitant]
     Active Substance: ASPIRIN
     Dosage: 1-0-0-0
     Route: 048
  7. RAMIPRIL. [Concomitant]
     Active Substance: RAMIPRIL
     Dosage: 1-0-0-0
     Route: 048
  8. ZOPICLON [Concomitant]
     Active Substance: ZOPICLONE
     Dosage: 0-0-0-1
     Route: 048
  9. ADENURIC [Concomitant]
     Active Substance: FEBUXOSTAT
     Dosage: 1-0-0-0
     Route: 048
  10. DONEPEZIL. [Concomitant]
     Active Substance: DONEPEZIL
     Dosage: 0-0-0.5-0
     Route: 048

REACTIONS (7)
  - Dizziness [Unknown]
  - Cardiac failure chronic [Unknown]
  - Chest discomfort [Unknown]
  - Nocturia [Unknown]
  - Labelled drug-drug interaction medication error [Unknown]
  - Dyspnoea exertional [Unknown]
  - Dizziness postural [Unknown]
